FAERS Safety Report 15056963 (Version 1)
Quarter: 2018Q2

REPORT INFORMATION
  Report Type: Spontaneous
  Country: US (occurrence: US)
  Receive Date: 20180604
  Receipt Date: 20180604
  Transmission Date: 20180711
  Serious: Yes (Other)
  Sender: FDA-Public Use
  Company Number: None

PATIENT
  Age: 72 Year
  Sex: Female
  Weight: 50.85 kg

DRUGS (8)
  1. HYDRALAZINE [Concomitant]
     Active Substance: HYDRALAZINE HYDROCHLORIDE
  2. RENAL-VITE [Concomitant]
  3. CAPECITABINE. [Suspect]
     Active Substance: CAPECITABINE
     Indication: BREAST CANCER
     Route: 048
     Dates: start: 20180514
  4. ASPIRIN LOW DOSE [Concomitant]
     Active Substance: ASPIRIN
  5. CARVEDILOL. [Concomitant]
     Active Substance: CARVEDILOL
  6. AMLODIPINE [Concomitant]
     Active Substance: AMLODIPINE BESYLATE
  7. LOSARTAN. [Concomitant]
     Active Substance: LOSARTAN
  8. CLONIDINE. [Concomitant]
     Active Substance: CLONIDINE

REACTIONS (2)
  - Palmar-plantar erythrodysaesthesia syndrome [None]
  - Contusion [None]
